FAERS Safety Report 7675149-0 (Version None)
Quarter: 2011Q3

REPORT INFORMATION
  Report Type: 
  Country: None (occurrence: None)
  Receive Date: 20110810
  Receipt Date: 20110729
  Transmission Date: 20111222
  Serious: Yes (Hospitalization)
  Sender: FDA-Public Use
  Company Number: CA-JNJFOC-20110507757

PATIENT
  Sex: Female
  Weight: 73 kg

DRUGS (7)
  1. VENTOLIN HFA [Concomitant]
  2. REMICADE [Suspect]
     Route: 042
     Dates: start: 20070801
  3. LABETALOL HCL [Concomitant]
  4. LABETALOL HCL [Concomitant]
  5. PULMICORT [Concomitant]
  6. REMICADE [Suspect]
     Indication: CROHN'S DISEASE
     Route: 042
     Dates: start: 20110516
  7. AMLODIPINE [Concomitant]

REACTIONS (3)
  - INFUSION RELATED REACTION [None]
  - MATERNAL EXPOSURE DURING PREGNANCY [None]
  - GESTATIONAL HYPERTENSION [None]
